FAERS Safety Report 6569233-2 (Version None)
Quarter: 2010Q1

REPORT INFORMATION
  Report Type: 
  Country: None (occurrence: None)
  Receive Date: 20100201
  Receipt Date: 20100201
  Transmission Date: 20100710
  Serious: Yes (Other)
  Sender: FDA-Public Use
  Company Number: None

PATIENT
  Age: 32 Year
  Sex: Female
  Weight: 70.3075 kg

DRUGS (1)
  1. LEVAQUIN [Suspect]

REACTIONS (4)
  - ABASIA [None]
  - ARTHRALGIA [None]
  - IMPAIRED DRIVING ABILITY [None]
  - TENDONITIS [None]
